FAERS Safety Report 15348870 (Version 2)
Quarter: 2018Q4

REPORT INFORMATION
  Report Type: Spontaneous
  Country: JP (occurrence: JP)
  Receive Date: 20180904
  Receipt Date: 20181011
  Transmission Date: 20190204
  Serious: Yes (Death, Hospitalization, Other)
  Sender: FDA-Public Use
  Company Number: JP-CELGENEUS-JPN-20180807309

PATIENT
  Age: 6 Decade
  Sex: Male

DRUGS (2)
  1. ISTODAX [Suspect]
     Active Substance: ROMIDEPSIN
     Indication: ANAPLASTIC LARGE-CELL LYMPHOMA
     Dosage: 14 MILLIGRAM/SQ. METER
     Route: 041
     Dates: start: 20180813, end: 20180813
  2. DIFOLTA [Concomitant]
     Indication: ANAPLASTIC LARGE-CELL LYMPHOMA
     Dosage: UNKNOWN
     Route: 065
     Dates: start: 201809, end: 201809

REACTIONS (3)
  - Anaplastic large-cell lymphoma [Fatal]
  - Hypoxia [Recovered/Resolved]
  - Disseminated intravascular coagulation [Unknown]

NARRATIVE: CASE EVENT DATE: 20180815
